FAERS Safety Report 11132105 (Version 1)
Quarter: 2015Q2

REPORT INFORMATION
  Report Type: Spontaneous
  Country: None (occurrence: None)
  Receive Date: 20150521
  Receipt Date: 20150521
  Transmission Date: 20150821
  Serious: No
  Sender: FDA-Public Use
  Company Number: None

PATIENT
  Age: 6 Year
  Sex: Male
  Weight: 30.84 kg

DRUGS (4)
  1. MIRALAX [Concomitant]
     Active Substance: POLYETHYLENE GLYCOL 3350
  2. ALOE JUICE [Concomitant]
  3. VYVANSE [Suspect]
     Active Substance: LISDEXAMFETAMINE DIMESYLATE
     Indication: ATTENTION DEFICIT/HYPERACTIVITY DISORDER
     Dosage: 1 CAPSULE, ONCE DAILY, TAKEN BY MOUTH
     Route: 048
  4. PRO-BIOTICS [Concomitant]

REACTIONS (3)
  - Tic [None]
  - Paraesthesia [None]
  - Excessive eye blinking [None]

NARRATIVE: CASE EVENT DATE: 20150520
